FAERS Safety Report 15258549 (Version 5)
Quarter: 2019Q4

REPORT INFORMATION
  Report Type: Spontaneous
  Country: FR (occurrence: DE)
  Receive Date: 20180809
  Receipt Date: 20191007
  Transmission Date: 20200122
  Serious: Yes (Other)
  Sender: FDA-Public Use
  Company Number: DE-TEVA-2018-DE-933868

PATIENT
  Age: 51 Year
  Sex: Female

DRUGS (7)
  1. ESTRADIOL. [Suspect]
     Active Substance: ESTRADIOL
     Indication: HORMONE REPLACEMENT THERAPY
     Dosage: 1 DOSAGE FORMS DAILY; 1 PUFF DAILY (1 DOSAGE FORMS, 1 IN 1)
     Route: 062
     Dates: start: 201508, end: 201510
  2. PROGESTERONE. [Suspect]
     Active Substance: PROGESTERONE
     Dosage: 100 MILLIGRAM DAILY; 1 CAPSULE(1 DOSAGE FORM, 1 IN 1 D)
     Route: 048
     Dates: start: 201612, end: 201703
  3. VALSARTAN. [Suspect]
     Active Substance: VALSARTAN
     Indication: BLOOD PRESSURE MEASUREMENT
     Dosage: 80 MILLIGRAM DAILY;
     Route: 048
  4. SERTRALINE [Concomitant]
     Active Substance: SERTRALINE HYDROCHLORIDE
     Indication: PRODUCT USED FOR UNKNOWN INDICATION
  5. ESTRADIOL. [Suspect]
     Active Substance: ESTRADIOL
     Dosage: 1 DOSAGE FORMS DAILY; 1 PUFF DAILY (1 DOSAGE FORMS, 1 D)
     Route: 062
     Dates: start: 201612, end: 201703
  6. PROGESTERONE. [Suspect]
     Active Substance: PROGESTERONE
     Indication: HORMONE REPLACEMENT THERAPY
     Dosage: 100 MILLIGRAM DAILY; 1 CAPSULE (100 MG, 1 IN 1 D)
     Route: 048
     Dates: start: 201508, end: 201510
  7. LEVOTHYROXINE. [Concomitant]
     Active Substance: LEVOTHYROXINE
     Indication: PRODUCT USED FOR UNKNOWN INDICATION
     Dates: start: 201508, end: 201610

REACTIONS (4)
  - Retinal vein occlusion [Recovered/Resolved]
  - Ophthalmic vein thrombosis [Unknown]
  - Product odour abnormal [Unknown]
  - Product taste abnormal [Unknown]

NARRATIVE: CASE EVENT DATE: 201704
